FAERS Safety Report 6237693-2 (Version None)
Quarter: 2009Q2

REPORT INFORMATION
  Report Type: 
  Country: None (occurrence: None)
  Receive Date: 20090617
  Receipt Date: 20090611
  Transmission Date: 20091009
  Serious: Yes (Other)
  Sender: FDA-Public Use
  Company Number: A0782907A

PATIENT
  Age: 61 Year
  Sex: Female

DRUGS (1)
  1. UREA HYDROGEN PEOXIDE DROP(S) (UREA HYDROGEN PEROXIDE) [Suspect]
     Dosage: AURAL
     Route: 001

REACTIONS (9)
  - ANXIETY [None]
  - DEAFNESS [None]
  - DEPRESSION [None]
  - DIZZINESS [None]
  - EAR PAIN [None]
  - OTORRHOEA [None]
  - SLEEP DISORDER [None]
  - TINNITUS [None]
  - TYMPANIC MEMBRANE PERFORATION [None]
